FAERS Safety Report 6272575-1 (Version None)
Quarter: 2009Q3

REPORT INFORMATION
  Report Type: 
  Country: None (occurrence: None)
  Receive Date: 20090716
  Receipt Date: 20090716
  Transmission Date: 20100115
  Serious: No
  Sender: FDA-Public Use
  Company Number: None

PATIENT
  Age: 42 Year
  Sex: Female
  Weight: 95.2554 kg

DRUGS (1)
  1. PRISTIQ [Suspect]
     Indication: DEPRESSION
     Dosage: 50 MG ONCE A DAY PO
     Route: 048
     Dates: start: 20090615, end: 20090710

REACTIONS (9)
  - ANGER [None]
  - ANXIETY [None]
  - DEPRESSION [None]
  - HYPERHIDROSIS [None]
  - IRRITABILITY [None]
  - MALAISE [None]
  - NAUSEA [None]
  - PALPITATIONS [None]
  - PRURITUS [None]
